FAERS Safety Report 8345590-1 (Version None)
Quarter: 2012Q2

REPORT INFORMATION
  Report Type: 
  Country: None (occurrence: None)
  Receive Date: 20120508
  Receipt Date: 20120424
  Transmission Date: 20120825
  Serious: Yes (Hospitalization, Other)
  Sender: FDA-Public Use
  Company Number: CA-ROCHE-GNE314949

PATIENT
  Sex: Female

DRUGS (2)
  1. XOLAIR [Suspect]
     Dosage: 300 MG, 1/MONTH
     Route: 058
     Dates: start: 20091201
  2. XOLAIR [Suspect]
     Indication: ASTHMA
     Dosage: 300 MG, 1/MONTH
     Route: 058
     Dates: start: 20060211

REACTIONS (9)
  - PRODUCTIVE COUGH [None]
  - RHINORRHOEA [None]
  - OROPHARYNGEAL PAIN [None]
  - ASTHMA [None]
  - VIRAL INFECTION [None]
  - CHEST PAIN [None]
  - NASOPHARYNGITIS [None]
  - HYPERSENSITIVITY [None]
  - DYSPNOEA [None]
